FAERS Safety Report 14745844 (Version 1)
Quarter: 2018Q2

REPORT INFORMATION
  Report Type: Report from Study
  Country: JP (occurrence: JP)
  Receive Date: 20180411
  Receipt Date: 20180411
  Transmission Date: 20180711
  Serious: Yes (Hospitalization, Other)
  Sender: FDA-Public Use
  Company Number: JP-ACTELION-A-CH2018-170382

PATIENT
  Age: 67 Year
  Sex: Female

DRUGS (21)
  1. WARFARIN [Concomitant]
     Active Substance: WARFARIN
  2. UPTRAVI [Suspect]
     Active Substance: SELEXIPAG
     Dosage: 0.6 MG, BID
     Route: 048
     Dates: end: 20170123
  3. ADCIRCA [Concomitant]
     Active Substance: TADALAFIL
  4. FUROSEMIDE. [Concomitant]
     Active Substance: FUROSEMIDE
  5. SPIRONOLACTONE. [Concomitant]
     Active Substance: SPIRONOLACTONE
  6. FEBURIC [Concomitant]
     Active Substance: FEBUXOSTAT
  7. UPTRAVI [Suspect]
     Active Substance: SELEXIPAG
     Dosage: 0.8 MG, BID
     Route: 048
     Dates: start: 20170124, end: 20170131
  8. CIBENOL [Concomitant]
     Active Substance: CIFENLINE
  9. UPTRAVI [Suspect]
     Active Substance: SELEXIPAG
     Dosage: 1 MG, BID
     Route: 048
     Dates: start: 20170330, end: 20170426
  10. OXYGEN. [Concomitant]
     Active Substance: OXYGEN
  11. UPTRAVI [Suspect]
     Active Substance: SELEXIPAG
     Dosage: 0.6 MG, BID
     Route: 048
     Dates: start: 20170201, end: 20170329
  12. CARELOAD [Concomitant]
     Active Substance: BERAPROST SODIUM
  13. DIART [Concomitant]
     Active Substance: AZOSEMIDE
  14. FERROUS CITRATE NA [Concomitant]
     Active Substance: SODIUM FERROUS CITRATE
  15. OPSUMIT [Suspect]
     Active Substance: MACITENTAN
     Indication: PULMONARY ARTERIAL HYPERTENSION
     Dosage: 10 MG, QD
     Route: 048
     Dates: start: 20150918
  16. UPTRAVI [Suspect]
     Active Substance: SELEXIPAG
     Indication: PULMONARY ARTERIAL HYPERTENSION
     Dosage: 1.2 MG, BID
     Route: 048
     Dates: start: 20170427
  17. UPTRAVI [Suspect]
     Active Substance: SELEXIPAG
     Dosage: 0.2 MG, BID
     Route: 048
     Dates: start: 20170112
  18. FLUITRAN [Suspect]
     Active Substance: TRICHLORMETHIAZIDE
     Indication: RIGHT VENTRICULAR FAILURE
     Dosage: 0.5-1 MG, QD
     Route: 048
     Dates: end: 20170803
  19. NEXIUM [Concomitant]
     Active Substance: ESOMEPRAZOLE MAGNESIUM
  20. PROHEPARUM [Concomitant]
     Active Substance: CHOLINE BITARTRATE\CYSTEINE\INOSITOL\MAMMAL LIVER
  21. BEPRICOR [Concomitant]
     Active Substance: BEPRIDIL

REACTIONS (6)
  - Anaemia [Recovering/Resolving]
  - Diarrhoea [Recovering/Resolving]
  - Bronchitis [Recovered/Resolved]
  - Renal impairment [Recovering/Resolving]
  - Headache [Recovering/Resolving]
  - Nausea [Recovering/Resolving]

NARRATIVE: CASE EVENT DATE: 20161216
